FAERS Safety Report 9724493 (Version 5)
Quarter: 2014Q1

REPORT INFORMATION
  Report Type: Spontaneous
  Country: JP (occurrence: JP)
  Receive Date: 20131202
  Receipt Date: 20140107
  Transmission Date: 20141002
  Serious: Yes (Hospitalization)
  Sender: FDA-Public Use
  Company Number: JP-PFIZER INC-2013335030

PATIENT
  Age: 82 Year
  Sex: Male
  Weight: 62 kg

DRUGS (12)
  1. SUTENT [Suspect]
     Indication: RENAL CELL CARCINOMA
     Dosage: 25 MG, 1X/DAY
     Route: 048
     Dates: start: 20121010, end: 20131023
  2. BICALUTAMIDE [Concomitant]
     Route: 048
  3. TAKEPRON [Concomitant]
     Route: 048
  4. MAGMITT [Concomitant]
     Route: 048
  5. CRESTOR [Concomitant]
     Route: 048
  6. NIFEDIPINE [Concomitant]
     Route: 048
  7. TIEKAPTO [Concomitant]
     Route: 048
  8. PERIACTIN [Concomitant]
     Route: 048
  9. SENEGA [Concomitant]
     Route: 048
  10. RINDERON [Concomitant]
     Route: 048
  11. TOSMERIAN SYRUP [Concomitant]
     Route: 048
  12. PROCAINAMIDE HYDROCHLORIDE [Concomitant]

REACTIONS (2)
  - Renal impairment [Recovered/Resolved]
  - Interstitial lung disease [Recovering/Resolving]
